FAERS Safety Report 7073810-2 (Version None)
Quarter: 2010Q4

REPORT INFORMATION
  Report Type: 
  Country: None (occurrence: None)
  Receive Date: 20101029
  Receipt Date: 20100917
  Transmission Date: 20110411
  Serious: No
  Sender: FDA-Public Use
  Company Number: A0876517A

PATIENT
  Age: 78 Year
  Sex: Male

DRUGS (4)
  1. ADVAIR DISKUS 100/50 [Suspect]
     Indication: ASTHMA
     Dosage: 1PUFF TWICE PER DAY
     Route: 055
     Dates: start: 19950101
  2. STATINS [Concomitant]
  3. ASPIRIN [Concomitant]
  4. OTHER MEDICATIONS [Concomitant]

REACTIONS (5)
  - COUGH [None]
  - PRODUCT QUALITY ISSUE [None]
  - PRODUCTIVE COUGH [None]
  - RESPIRATORY DISORDER [None]
  - SPUTUM INCREASED [None]
